FAERS Safety Report 21198574 (Version 2)
Quarter: 2022Q3

REPORT INFORMATION
  Report Type: Report from Study
  Country: US (occurrence: US)
  Receive Date: 20220811
  Receipt Date: 20220815
  Transmission Date: 20221027
  Serious: No
  Sender: FDA-Public Use
  Company Number: US-SUNOVION-2022SUN002320

PATIENT
  Age: 71 Year
  Sex: Male

DRUGS (4)
  1. KYNMOBI [Suspect]
     Active Substance: APOMORPHINE HYDROCHLORIDE
     Dosage: UNK
     Route: 060
     Dates: start: 20220729
  2. KYNMOBI [Suspect]
     Active Substance: APOMORPHINE HYDROCHLORIDE
     Dosage: 10 MG
     Route: 060
  3. KYNMOBI [Suspect]
     Active Substance: APOMORPHINE HYDROCHLORIDE
     Dosage: 15 MG
     Route: 060
     Dates: start: 20220809
  4. KYNMOBI [Suspect]
     Active Substance: APOMORPHINE HYDROCHLORIDE
     Dosage: 20 MG
     Route: 060

REACTIONS (9)
  - Heart rate decreased [Unknown]
  - Dysstasia [Unknown]
  - Cold sweat [Unknown]
  - Malaise [Unknown]
  - Dizziness [Unknown]
  - Vomiting [Unknown]
  - Blood pressure decreased [Unknown]
  - Drug monitoring procedure not performed [Unknown]
  - Expired product administered [Unknown]

NARRATIVE: CASE EVENT DATE: 20220809
